FAERS Safety Report 10041191 (Version 6)
Quarter: 2015Q2

REPORT INFORMATION
  Report Type: Spontaneous
  Country: US (occurrence: US)
  Receive Date: 20140327
  Receipt Date: 20150602
  Transmission Date: 20150821
  Serious: Yes (Other)
  Sender: FDA-Public Use
  Company Number: US-PFIZER INC-2014083394

PATIENT
  Age: 74 Year
  Sex: Female
  Weight: 81 kg

DRUGS (17)
  1. NITROSTAT [Concomitant]
     Active Substance: NITROGLYCERIN
     Indication: CARDIAC DISORDER
     Dosage: 0.4 MG, 1 TO 3 TIMES A DAY AS NEEDED
  2. TESSALON [Suspect]
     Active Substance: BENZONATATE
     Indication: COUGH
     Dosage: 200 MG, FOUR TIMES A DAY
     Dates: start: 2011
  3. OMEPRAZOLE. [Concomitant]
     Active Substance: OMEPRAZOLE
     Indication: GASTROOESOPHAGEAL REFLUX DISEASE
     Dosage: 40 MG, DAILY
  4. CLOBETASOL PROPIONATE. [Concomitant]
     Active Substance: CLOBETASOL PROPIONATE
     Indication: ECZEMA
     Dosage: UNK, 2X/DAY
  5. PROCHLORPERAZINE MALEATE. [Concomitant]
     Active Substance: PROCHLORPERAZINE MALEATE
     Indication: ABDOMINAL DISCOMFORT
     Dosage: 10 MG, 3X/DAY
  6. NITROGLYCERINE [Concomitant]
     Active Substance: NITROGLYCERIN
     Dosage: 0.2 MG, ONCE DAILY EVERY 12 HOURS
  7. VALSARTAN. [Concomitant]
     Active Substance: VALSARTAN
     Indication: BLOOD PRESSURE ABNORMAL
     Dosage: 320 MG, 1X/DAY
  8. AMLODIPINE BESYLATE. [Concomitant]
     Active Substance: AMLODIPINE BESYLATE
     Indication: HYPERTENSION
     Dosage: 5 MG, DAILY (AT NIGHT)
  9. FUROSEMIDE. [Concomitant]
     Active Substance: FUROSEMIDE
     Indication: SWELLING
     Dosage: 40 MG, 1X/DAY
  10. LANTUS [Concomitant]
     Active Substance: INSULIN GLARGINE
     Indication: BLOOD GLUCOSE INCREASED
     Dosage: (100 ML 95 UNITS IN NIGHT), 1X/DAY
  11. LORATADINE. [Concomitant]
     Active Substance: LORATADINE
     Indication: HYPERSENSITIVITY
     Dosage: 10 MG, DAILY
  12. TESSALON [Suspect]
     Active Substance: BENZONATATE
     Indication: CHRONIC OBSTRUCTIVE PULMONARY DISEASE
     Dosage: 100 MG, (3 TO 4 TIMES IN A DAY)
  13. VENTOLIN HFA [Concomitant]
     Active Substance: ALBUTEROL SULFATE
     Indication: DYSPNOEA
     Dosage: 90 ?G, (3 TO 4 TIMES A DAY)
  14. ASPIRIN. [Concomitant]
     Active Substance: ASPIRIN
     Indication: CARDIAC DISORDER
     Dosage: 81 MG, DAILY
  15. KLOR-CON [Concomitant]
     Active Substance: POTASSIUM CHLORIDE
     Indication: BLOOD POTASSIUM ABNORMAL
     Dosage: 10 MG, 2X/DAY
  16. CRESTOR [Concomitant]
     Active Substance: ROSUVASTATIN CALCIUM
     Indication: BLOOD CHOLESTEROL INCREASED
     Dosage: 20 MG, UNK
  17. ADVAIR DISKUS [Concomitant]
     Active Substance: FLUTICASONE PROPIONATE\SALMETEROL XINAFOATE
     Indication: CHRONIC OBSTRUCTIVE PULMONARY DISEASE
     Dosage: 250/50 MG, 2X/DAY

REACTIONS (6)
  - Emphysema [Not Recovered/Not Resolved]
  - Choking [Unknown]
  - Bronchitis [Not Recovered/Not Resolved]
  - Overdose [Unknown]
  - Drug ineffective [Unknown]
  - Chronic obstructive pulmonary disease [Not Recovered/Not Resolved]

NARRATIVE: CASE EVENT DATE: 2011
